FAERS Safety Report 9481961 (Version 2)
Quarter: 2013Q3

REPORT INFORMATION
  Report Type: Spontaneous
  Country: US (occurrence: US)
  Receive Date: 20130828
  Receipt Date: 20130920
  Transmission Date: 20140515
  Serious: No
  Sender: FDA-Public Use
  Company Number: US-PFIZER INC-2013248060

PATIENT
  Age: 62 Year
  Sex: Female
  Weight: 80.73 kg

DRUGS (3)
  1. LYRICA [Suspect]
     Indication: NEURALGIA
     Dosage: ONE CAPSULE OF 75MG IN MORNING, ONE CAPSULE OF 75MG IN AFTERNOON AND TWO CAPSULES OF 75MG AT NIGHT
     Route: 048
     Dates: start: 201101
  2. ATORVASTATIN CALCIUM [Concomitant]
     Indication: BLOOD CHOLESTEROL INCREASED
     Dosage: UNK
  3. EFFEXOR [Concomitant]
     Dosage: UNK

REACTIONS (1)
  - Neuralgia [Recovered/Resolved]
